FAERS Safety Report 25539397 (Version 1)
Quarter: 2025Q3

REPORT INFORMATION
  Report Type: Spontaneous
  Country: US (occurrence: US)
  Receive Date: 20250710
  Receipt Date: 20250710
  Transmission Date: 20251020
  Serious: No
  Sender: ROCHE
  Company Number: US-ROCHE-10000329091

PATIENT
  Sex: Male

DRUGS (4)
  1. RITUXAN [Suspect]
     Active Substance: RITUXIMAB
     Indication: Type 2 diabetes mellitus
     Dosage: REPEAT IN EVERY 4 MONTHS
     Route: 042
     Dates: start: 202504
  2. RITUXAN [Suspect]
     Active Substance: RITUXIMAB
     Indication: Granulomatosis with polyangiitis
  3. RITUXAN [Suspect]
     Active Substance: RITUXIMAB
     Indication: Anti-neutrophil cytoplasmic antibody positive vasculitis
  4. RITUXAN [Suspect]
     Active Substance: RITUXIMAB
     Indication: Diabetic nephropathy

REACTIONS (2)
  - Constipation [Unknown]
  - Off label use [Unknown]
